FAERS Safety Report 10774203 (Version 1)
Quarter: 2015Q1

REPORT INFORMATION
  Report Type: Spontaneous
  Country: CN (occurrence: CN)
  Receive Date: 20150208
  Receipt Date: 20150208
  Transmission Date: 20150721
  Serious: Yes (Hospitalization)
  Sender: FDA-Public Use
  Company Number: CN-ROCHE-1534297

PATIENT
  Age: 32 Year
  Sex: Female
  Weight: 51 kg

DRUGS (1)
  1. PEGASYS [Suspect]
     Active Substance: PEGINTERFERON ALFA-2A
     Indication: CHRONIC HEPATITIS B
     Route: 058
     Dates: start: 20140325, end: 20140709

REACTIONS (1)
  - Panniculitis [Not Recovered/Not Resolved]

NARRATIVE: CASE EVENT DATE: 20140702
